FAERS Safety Report 4773836-5 (Version None)
Quarter: 2005Q3

REPORT INFORMATION
  Report Type: 
  Country: None (occurrence: None)
  Receive Date: 20050920
  Receipt Date: 20050912
  Transmission Date: 20060218
  Serious: Yes (Other)
  Sender: FDA-Public Use
  Company Number: GB-GLAXOSMITHKLINE-B0393660A

PATIENT
  Age: 24 Year
  Sex: Male
  Weight: 83 kg

DRUGS (1)
  1. MALARONE [Suspect]
     Indication: MALARIA PROPHYLAXIS
     Route: 048
     Dates: start: 20050327, end: 20050403

REACTIONS (4)
  - FATIGUE [None]
  - HEADACHE [None]
  - RASH ERYTHEMATOUS [None]
  - STOMATITIS [None]
